FAERS Safety Report 19908191 (Version 6)
Quarter: 2022Q2

REPORT INFORMATION
  Report Type: Report from Study
  Country: AR (occurrence: AR)
  Receive Date: 20211001
  Receipt Date: 20220523
  Transmission Date: 20220720
  Serious: Yes (Hospitalization)
  Sender: FDA-Public Use
  Company Number: AR-SA-SAC20210709000252

PATIENT
  Age: 73 Year
  Sex: Female

DRUGS (4)
  1. LANREOTIDE ACETATE [Suspect]
     Active Substance: LANREOTIDE ACETATE
     Indication: Neuroendocrine tumour
     Dosage: 120 MG, Q4W
     Route: 065
     Dates: start: 20210601, end: 2021
  2. COVID-19 VACCINE [Concomitant]
     Indication: COVID-19 immunisation
     Dosage: UNK
     Dates: start: 20210703
  3. OXALIPLATIN [Concomitant]
     Active Substance: OXALIPLATIN
     Dosage: OXALIPLATIN 100MG FA X 1,00
  4. CAPECITABINE [Concomitant]
     Active Substance: CAPECITABINE
     Dosage: CAPECITABINE 500MG TAB X 120

REACTIONS (5)
  - Colon neoplasm [Recovering/Resolving]
  - Vomiting [Recovering/Resolving]
  - Anaemia [Recovering/Resolving]
  - Abdominal pain [Recovering/Resolving]
  - Chemotherapy [Recovering/Resolving]

NARRATIVE: CASE EVENT DATE: 20210101
